FAERS Safety Report 12924943 (Version 3)
Quarter: 2017Q3

REPORT INFORMATION
  Report Type: Report from Study
  Country: US (occurrence: US)
  Receive Date: 20161108
  Receipt Date: 20170728
  Transmission Date: 20171127
  Serious: Yes (Life-Threatening, Hospitalization, Other)
  Sender: FDA-Public Use
  Company Number: US-ACTELION-A-NJ2016-145106

PATIENT
  Age: 4 Year
  Sex: Male

DRUGS (17)
  1. ALBUTEROL. [Concomitant]
     Active Substance: ALBUTEROL
     Dosage: 2.5 MG, Q4HRS PRN
  2. ESOMEPRAZOLE [Concomitant]
     Active Substance: ESOMEPRAZOLE
     Dosage: 10 MG, 2 PACKETS QD
     Dates: start: 20160906
  3. MIRALAX [Concomitant]
     Active Substance: POLYETHYLENE GLYCOL 3350
     Dosage: 8.5 G, QD
     Dates: start: 20150618
  4. ROBINUL [Concomitant]
     Active Substance: GLYCOPYRROLATE
  5. POLYETHYLENE GLYCOL [Concomitant]
     Active Substance: POLYETHYLENE GLYCOLS
     Dosage: 17 G, QD PRN
  6. IPRATROPIUM BROMIDE. [Concomitant]
     Active Substance: IPRATROPIUM BROMIDE
  7. ZYRTEC [Concomitant]
     Active Substance: CETIRIZINE HYDROCHLORIDE
  8. NEXIUM [Concomitant]
     Active Substance: ESOMEPRAZOLE MAGNESIUM
  9. TYLENOL [Concomitant]
     Active Substance: ACETAMINOPHEN
  10. ZAVESCA [Suspect]
     Active Substance: MIGLUSTAT
     Indication: NIEMANN-PICK DISEASE
     Dosage: 100 MG, BID
     Route: 048
     Dates: start: 20151218
  11. ALBUTEROL. [Concomitant]
     Active Substance: ALBUTEROL
     Dosage: 1 DF, INHALED AS DIRECTED
     Dates: start: 20151217
  12. ARTANE [Concomitant]
     Active Substance: TRIHEXYPHENIDYL HYDROCHLORIDE
  13. SENNA [Concomitant]
     Active Substance: SENNA LEAF\SENNOSIDES\SENNOSIDES A AND B
     Dosage: UNK, BID
  14. CETIRIZINE [Concomitant]
     Active Substance: CETIRIZINE HYDROCHLORIDE
     Dosage: 5 MG, QD
  15. GABAPENTIN. [Concomitant]
     Active Substance: GABAPENTIN
     Dosage: 100 MG, TID
  16. SODIUM CHLORIDE. [Concomitant]
     Active Substance: SODIUM CHLORIDE
     Dosage: 2 ML, BID
  17. ERYTHROMYCIN. [Concomitant]
     Active Substance: ERYTHROMYCIN
     Dosage: 3 MG/KG QID

REACTIONS (31)
  - Tremor [Recovering/Resolving]
  - Serratia bacteraemia [Recovering/Resolving]
  - Hypercapnia [Recovering/Resolving]
  - Dyspnoea [Recovering/Resolving]
  - Tachypnoea [Recovering/Resolving]
  - Pyrexia [Recovering/Resolving]
  - Unresponsive to stimuli [Recovered/Resolved]
  - Hypokalaemia [Recovering/Resolving]
  - Withdrawal syndrome [Recovering/Resolving]
  - Pneumonia aspiration [Recovering/Resolving]
  - Tongue spasm [Recovering/Resolving]
  - Hypertension [Recovering/Resolving]
  - Increased bronchial secretion [Recovering/Resolving]
  - Agitation [Recovering/Resolving]
  - Respiratory rate increased [Recovered/Resolved]
  - Acute respiratory failure [Recovering/Resolving]
  - Staring [Recovered/Resolved]
  - Blood culture positive [Recovering/Resolving]
  - Pneumatosis intestinalis [Recovering/Resolving]
  - Oxygen saturation decreased [Recovering/Resolving]
  - Vomiting [Recovering/Resolving]
  - Wheezing [Recovered/Resolved]
  - Anxiety [Unknown]
  - Drooling [Recovered/Resolved]
  - Hypoxia [Recovering/Resolving]
  - Petit mal epilepsy [Recovering/Resolving]
  - Use of accessory respiratory muscles [Recovering/Resolving]
  - Productive cough [Recovering/Resolving]
  - Heart rate increased [Recovered/Resolved]
  - Blood pressure decreased [Recovering/Resolving]
  - Abdominal distension [Recovering/Resolving]

NARRATIVE: CASE EVENT DATE: 20161012
